FAERS Safety Report 6266555-X (Version None)
Quarter: 2009Q3

REPORT INFORMATION
  Report Type: 
  Country: None (occurrence: None)
  Receive Date: 20090710
  Receipt Date: 20090630
  Transmission Date: 20100115
  Serious: Yes (Disabling, Other)
  Sender: FDA-Public Use
  Company Number: 2009AL004334

PATIENT
  Sex: Female

DRUGS (2)
  1. METOCLOPRAMIDE [Suspect]
     Indication: GASTROOESOPHAGEAL REFLUX DISEASE
     Dosage: PO
     Route: 048
     Dates: start: 20030101, end: 20061029
  2. METOCLOPRAMIDE [Suspect]
     Indication: GASTROOESOPHAGEAL REFLUX DISEASE
     Dosage: PO
     Route: 048
     Dates: start: 20030101, end: 20061029

REACTIONS (17)
  - ACTIVITIES OF DAILY LIVING IMPAIRED [None]
  - AKATHISIA [None]
  - DEPRESSION [None]
  - DYSKINESIA [None]
  - ECONOMIC PROBLEM [None]
  - EXTRAPYRAMIDAL DISORDER [None]
  - FEELING COLD [None]
  - GRIMACING [None]
  - MENTAL DISORDER [None]
  - METABOLIC DISORDER [None]
  - NERVOUS SYSTEM DISORDER [None]
  - PAIN [None]
  - PALLOR [None]
  - SUICIDAL IDEATION [None]
  - TARDIVE DYSKINESIA [None]
  - TREMOR [None]
  - VISUAL IMPAIRMENT [None]
